FAERS Safety Report 17436140 (Version 1)
Quarter: 2020Q1

REPORT INFORMATION
  Report Type: Spontaneous
  Country: US (occurrence: US)
  Receive Date: 20200219
  Receipt Date: 20200219
  Transmission Date: 20200409
  Serious: Yes (Other)
  Sender: FDA-Public Use
  Company Number: US-SHIRE-US202005647

PATIENT
  Age: 77 Year
  Sex: Female
  Weight: 55.78 kg

DRUGS (1)
  1. FIRAZYR [Suspect]
     Active Substance: ICATIBANT ACETATE
     Indication: IMMUNE SYSTEM DISORDER
     Dosage: 30 MILLIGRAM, AS REQ^D
     Route: 058
     Dates: start: 20190326

REACTIONS (8)
  - Nasal congestion [Unknown]
  - Lung neoplasm malignant [Unknown]
  - Cough [Unknown]
  - Skin exfoliation [Unknown]
  - Emotional disorder [Unknown]
  - Insomnia [Unknown]
  - Sleep apnoea syndrome [Unknown]
  - Pruritus [Unknown]

NARRATIVE: CASE EVENT DATE: 201911
